FAERS Safety Report 19854461 (Version 1)
Quarter: 2021Q3

REPORT INFORMATION
  Report Type: Spontaneous
  Country: NL (occurrence: NL)
  Receive Date: 20210920
  Receipt Date: 20210920
  Transmission Date: 20211014
  Serious: Yes (Other)
  Sender: FDA-Public Use
  Company Number: NL-AUROBINDO-AUR-APL-2021-039349

PATIENT
  Age: 73 Year
  Sex: Female
  Weight: 73 kg

DRUGS (8)
  1. MACROGOL [Concomitant]
     Active Substance: POLYETHYLENE GLYCOLS
     Indication: ABNORMAL FAECES
     Dosage: UNK
     Route: 065
  2. MOVICOLON [Concomitant]
     Active Substance: POLYETHYLENE GLYCOL 3350\POTASSIUM CHLORIDE\SODIUM BICARBONATE\SODIUM CHLORIDE
     Indication: PRODUCT USED FOR UNKNOWN INDICATION
     Dosage: UNK
     Route: 065
  3. LEVODOPA/CARBIDOPA [Concomitant]
     Active Substance: CARBIDOPA\LEVODOPA
     Indication: PRODUCT USED FOR UNKNOWN INDICATION
     Dosage: 2 DOSAGE FORM, ONCE A DAY (LEVODOPA/CARBIDOPA MGA)
     Route: 048
  4. DUODOPA [Interacting]
     Active Substance: CARBIDOPA\LEVODOPA
     Dosage: MD: 14.0 ML, CD: 4.0ML/H, ED: 3.0ML
     Route: 050
     Dates: start: 20181218
  5. ENTACAPONE. [Concomitant]
     Active Substance: ENTACAPONE
     Indication: PRODUCT USED FOR UNKNOWN INDICATION
     Dosage: 1 DOSAGE FORM, ONCE A DAY
     Route: 048
  6. DUODOPA [Interacting]
     Active Substance: CARBIDOPA\LEVODOPA
     Indication: PARKINSON^S DISEASE
     Dosage: MD: 13.5 ML, CD: 4.0 ML/H, ED: 3.0 ML
     Route: 050
  7. VENLAFAXINE [Suspect]
     Active Substance: VENLAFAXINE HYDROCHLORIDE
     Indication: PRODUCT USED FOR UNKNOWN INDICATION
     Dosage: UNK
     Route: 048
  8. LEVODOPA/CARBIDOPA [Concomitant]
     Active Substance: CARBIDOPA\LEVODOPA
     Dosage: LEVODOPA/CARBIDOPA RETARD
     Route: 065

REACTIONS (55)
  - Psychiatric symptom [Not Recovered/Not Resolved]
  - Confusional state [Not Recovered/Not Resolved]
  - Sleep talking [Not Recovered/Not Resolved]
  - Arthropathy [Not Recovered/Not Resolved]
  - Product dose omission issue [Recovered/Resolved]
  - Device dislocation [Unknown]
  - Stoma site pain [Recovered/Resolved]
  - Restless legs syndrome [Recovering/Resolving]
  - Abnormal dreams [Recovered/Resolved]
  - Ageusia [Not Recovered/Not Resolved]
  - Decreased appetite [Not Recovered/Not Resolved]
  - Joint dislocation [Not Recovered/Not Resolved]
  - Poor quality sleep [Not Recovered/Not Resolved]
  - Anxiety [Not Recovered/Not Resolved]
  - Fibroma [Not Recovered/Not Resolved]
  - Disturbance in attention [Not Recovered/Not Resolved]
  - Abnormal faeces [Recovered/Resolved]
  - Malaise [Not Recovered/Not Resolved]
  - Terminal insomnia [Recovering/Resolving]
  - Fear of falling [Unknown]
  - Fatigue [Not Recovered/Not Resolved]
  - Hyperkinesia [Recovered/Resolved]
  - Stoma site discharge [Recovered/Resolved]
  - Gait disturbance [Not Recovered/Not Resolved]
  - Bacterial infection [Not Recovered/Not Resolved]
  - On and off phenomenon [Not Recovered/Not Resolved]
  - Mobility decreased [Not Recovered/Not Resolved]
  - Fall [Not Recovered/Not Resolved]
  - Pain [Not Recovered/Not Resolved]
  - Polyneuropathy [Unknown]
  - Hyperhidrosis [Not Recovered/Not Resolved]
  - Freezing phenomenon [Not Recovered/Not Resolved]
  - Hypoaesthesia [Unknown]
  - Freezing phenomenon [Recovered/Resolved]
  - Somnolence [Not Recovered/Not Resolved]
  - Device leakage [Not Recovered/Not Resolved]
  - Muscle rigidity [Not Recovered/Not Resolved]
  - Stoma site irritation [Recovered/Resolved]
  - Stoma site reaction [Recovered/Resolved]
  - Tension [Not Recovered/Not Resolved]
  - Device breakage [Unknown]
  - Stoma site erythema [Recovered/Resolved]
  - Restlessness [Recovered/Resolved]
  - Orthostatic hypotension [Not Recovered/Not Resolved]
  - Dizziness [Recovering/Resolving]
  - Discharge [Not Recovered/Not Resolved]
  - Bradykinesia [Not Recovered/Not Resolved]
  - Dyskinesia [Not Recovered/Not Resolved]
  - Stoma site infection [Not Recovered/Not Resolved]
  - Nocturia [Not Recovered/Not Resolved]
  - Memory impairment [Not Recovered/Not Resolved]
  - Hypotension [Not Recovered/Not Resolved]
  - Insomnia [Not Recovered/Not Resolved]
  - Musculoskeletal stiffness [Not Recovered/Not Resolved]
  - Therapeutic product effect incomplete [Recovered/Resolved]
